FAERS Safety Report 5587550-X (Version None)
Quarter: 2008Q1

REPORT INFORMATION
  Report Type: 
  Country: None (occurrence: None)
  Receive Date: 20080107
  Receipt Date: 20071227
  Transmission Date: 20080703
  Serious: Yes (Hospitalization)
  Sender: FDA-Public Use
  Company Number: GXKR2007DK10995

PATIENT
  Age: 57 Year
  Sex: Male

DRUGS (2)
  1. SIMVASTATIN [Suspect]
     Indication: HYPERCHOLESTEROLAEMIA
     Dosage: 40 MG,; 40 MG, ORAL
     Route: 048
     Dates: start: 20070101, end: 20070523
  2. SIMVASTATIN [Suspect]
     Indication: HYPERCHOLESTEROLAEMIA
     Dosage: 40 MG,; 40 MG, ORAL
     Route: 048
     Dates: start: 20061124

REACTIONS (1)
  - CRYPTOGENIC ORGANISING PNEUMONIA [None]
